FAERS Safety Report 24883157 (Version 1)
Quarter: 2025Q1

REPORT INFORMATION
  Report Type: Spontaneous
  Country: MY (occurrence: MY)
  Receive Date: 20250124
  Receipt Date: 20250124
  Transmission Date: 20250409
  Serious: Yes (Other)
  Sender: MERCK
  Company Number: MY-009507513-2501MYS003974

PATIENT
  Age: 10 Year
  Sex: Male

DRUGS (1)
  1. BRIDION [Suspect]
     Active Substance: SUGAMMADEX SODIUM
     Indication: Neuromuscular blockade reversal
     Route: 042

REACTIONS (4)
  - Hypotension [Recovered/Resolved]
  - Heart rate increased [Recovering/Resolving]
  - Cold sweat [Recovered/Resolved]
  - White blood cell count increased [Recovered/Resolved]
